FAERS Safety Report 7086502-0 (Version None)
Quarter: 2010Q4

REPORT INFORMATION
  Report Type: 
  Country: None (occurrence: None)
  Receive Date: 20101105
  Receipt Date: 20101028
  Transmission Date: 20110411
  Serious: Yes (Hospitalization)
  Sender: FDA-Public Use
  Company Number: US-MILLENNIUM PHARMACEUTICALS, INC.-2010-04558

PATIENT
  Age: 75 Year
  Sex: Female
  Weight: 53.2 kg

DRUGS (2)
  1. VELCADE [Suspect]
     Indication: MULTIPLE MYELOMA
     Dosage: 1.6 MG/M2, UNK
     Route: 042
     Dates: start: 20100712, end: 20100802
  2. DEXAMETHASONE [Suspect]
     Indication: MULTIPLE MYELOMA
     Dosage: 20 MG, UNK
     Route: 048
     Dates: start: 20100712

REACTIONS (8)
  - ANGINA PECTORIS [None]
  - BLOOD POTASSIUM DECREASED [None]
  - CARDIAC FAILURE CONGESTIVE [None]
  - CARDIOMEGALY [None]
  - HAEMOGLOBIN DECREASED [None]
  - PLATELET COUNT DECREASED [None]
  - PULMONARY ARTERIAL PRESSURE INCREASED [None]
  - TACHYCARDIA [None]
